FAERS Safety Report 6185657-X (Version None)
Quarter: 2009Q2

REPORT INFORMATION
  Report Type: 
  Country: None (occurrence: None)
  Receive Date: 20090511
  Receipt Date: 20090427
  Transmission Date: 20091009
  Serious: Yes (Hospitalization)
  Sender: FDA-Public Use
  Company Number: PHHY2009AU17181

PATIENT
  Age: 8 Year
  Sex: Female

DRUGS (5)
  1. TERBINAFINE HCL [Suspect]
     Indication: OSTEOMYELITIS FUNGAL
     Dosage: 125MG DAILY
     Dates: start: 20061206
  2. TERBINAFINE HCL [Suspect]
     Dosage: 125MG-250MG ON ALTERNATE DAYS
     Dates: end: 20071201
  3. VORICONAZOLE [Suspect]
     Indication: OSTEOMYELITIS FUNGAL
     Dosage: 6 MG/KG EVERY 12 H FOR 24 H
  4. VORICONAZOLE [Suspect]
     Dosage: 4 MG/KG EVERY 12 H
  5. VORICONAZOLE [Suspect]
     Dosage: 9MG/KG DEVIDED 3 TIMES DAILY
     Dates: end: 20071001

REACTIONS (7)
  - ABSCESS DRAINAGE [None]
  - BONE EROSION [None]
  - CELLULITIS [None]
  - OSTEOMYELITIS FUNGAL [None]
  - OSTEONECROSIS [None]
  - SCEDOSPORIUM INFECTION [None]
  - SURGERY [None]
